FAERS Safety Report 12899773 (Version 1)
Quarter: 2016Q4

REPORT INFORMATION
  Report Type: Spontaneous
  Country: US (occurrence: US)
  Receive Date: 20161031
  Receipt Date: 20161031
  Transmission Date: 20170207
  Serious: Yes (Other)
  Sender: FDA-Public Use
  Company Number: None

PATIENT
  Age: 38 Year
  Sex: Female
  Weight: 63 kg

DRUGS (10)
  1. B-COMPLEX VITAMIN [Concomitant]
  2. SUMATRIPTAN SUCC [Concomitant]
     Active Substance: SUMATRIPTAN SUCCINATE
  3. ADVAIR HFA [Concomitant]
     Active Substance: FLUTICASONE PROPIONATE\SALMETEROL XINAFOATE
  4. KRILL [Concomitant]
  5. WOMEN^S VITAMIN [Concomitant]
  6. SPIRIVA RESPIMAT [Suspect]
     Active Substance: TIOTROPIUM BROMIDE
     Indication: ASTHMA
     Dosage: ?          OTHER STRENGTH:MCG/ACTUATION;QUANTITY:91 PUFF(S);?
     Route: 055
     Dates: start: 20160329, end: 20160630
  7. SPIRIVA RESPIMAT [Suspect]
     Active Substance: TIOTROPIUM BROMIDE
     Indication: BRONCHIECTASIS
     Dosage: ?          OTHER STRENGTH:MCG/ACTUATION;QUANTITY:91 PUFF(S);?
     Route: 055
     Dates: start: 20160329, end: 20160630
  8. BIOTIN [Concomitant]
     Active Substance: BIOTIN
  9. ZYRTEC [Concomitant]
     Active Substance: CETIRIZINE HYDROCHLORIDE
  10. CALCIUM [Concomitant]
     Active Substance: CALCIUM

REACTIONS (2)
  - Angina pectoris [None]
  - Heart rate increased [None]

NARRATIVE: CASE EVENT DATE: 20160630
